FAERS Safety Report 4850250-5 (Version None)
Quarter: 2005Q4

REPORT INFORMATION
  Report Type: 
  Country: None (occurrence: None)
  Receive Date: 20051123
  Receipt Date: 20041209
  Transmission Date: 20060501
  Serious: Yes (Other)
  Sender: FDA-Public Use
  Company Number: 001-0981-M0103343

PATIENT
  Age: 55 Year
  Sex: Male
  Weight: 87.9978 kg

DRUGS (6)
  1. LIPITOR [Suspect]
     Indication: BLOOD CHOLESTEROL INCREASED
     Dosage: 10 MG (1 IN 1 D) ORAL
     Route: 048
     Dates: start: 19970601, end: 20010301
  2. ACETYLSALICYLIC ACID SRT [Concomitant]
  3. DYAZIDE [Concomitant]
  4. LISINOPRIL [Concomitant]
  5. TOCOPHEROL (TOCOPHEROL) [Concomitant]
  6. LISINOPRIL [Concomitant]

REACTIONS (2)
  - BLOOD PRESSURE INCREASED [None]
  - GLOBAL AMNESIA [None]
